FAERS Safety Report 8159744-0 (Version None)
Quarter: 2012Q1

REPORT INFORMATION
  Report Type: 
  Country: None (occurrence: None)
  Receive Date: 20120223
  Receipt Date: 20120215
  Transmission Date: 20120608
  Serious: Yes (Death, Other)
  Sender: FDA-Public Use
  Company Number: FR-BRISTOL-MYERS SQUIBB COMPANY-14539191

PATIENT
  Age: 60 Year
  Sex: Female

DRUGS (8)
  1. FERROUS SULFATE TAB [Concomitant]
     Dosage: 2 IN MOR + 1 IN EVE
  2. XANAX [Concomitant]
     Dosage: 1DF FORM OF 0.5MG XANAX TABS
  3. ACETAMINOPHEN [Concomitant]
     Dosage: 500MG DAFALGAN 2 DOSAGE FORM THU 6 DOSAGE FORM (3X DAILY ON FRI)
  4. GLUCOPHAGE [Suspect]
     Indication: TYPE 2 DIABETES MELLITUS
     Route: 048
     Dates: start: 20080101
  5. TRAMADOL HCL [Concomitant]
     Dosage: 2DF( 1DF IN MORNING, EVENING)100MG 1DF(1DF IN MORNING)
  6. METFORMIN HCL [Concomitant]
     Indication: TYPE 2 DIABETES MELLITUS
     Dosage: FORM-TABS
     Route: 048
  7. KETOPROFEN [Concomitant]
     Dosage: 1 DF THU EVENING 1 DF IN THE MORNING AND EVENING FRI, SAT, SUN
  8. FOLIC ACID [Concomitant]
     Dosage: 2 DF MORNING, 2 DF MIDDAY, 1 DF IN EVE ON SUNDAY

REACTIONS (3)
  - MEDICATION ERROR [None]
  - OVERDOSE [None]
  - LACTIC ACIDOSIS [None]
